FAERS Safety Report 20003991 (Version 1)
Quarter: 2021Q4

REPORT INFORMATION
  Report Type: Spontaneous
  Country: CN (occurrence: CN)
  Receive Date: 20211027
  Receipt Date: 20211027
  Transmission Date: 20220303
  Serious: Yes (Other)
  Sender: FDA-Public Use
  Company Number: CN-PFIZER INC-202101382698

PATIENT
  Age: 38 Year
  Sex: Female
  Weight: 42.5 kg

DRUGS (1)
  1. SOLU-MEDROL [Suspect]
     Active Substance: METHYLPREDNISOLONE SODIUM SUCCINATE
     Indication: Neuromyelitis optica spectrum disorder
     Dosage: 0.5 G, 1X/DAY
     Route: 041
     Dates: start: 20211003

REACTIONS (4)
  - Hypokalaemia [Recovering/Resolving]
  - Electrocardiogram U-wave abnormality [Recovering/Resolving]
  - Off label use [Unknown]
  - Muscular weakness [Recovering/Resolving]

NARRATIVE: CASE EVENT DATE: 20211003
